FAERS Safety Report 7883189-1 (Version None)
Quarter: 2011Q4

REPORT INFORMATION
  Report Type: 
  Country: None (occurrence: None)
  Receive Date: 20111031
  Receipt Date: 20111021
  Transmission Date: 20120403
  Serious: Yes (Other)
  Sender: FDA-Public Use
  Company Number: 201110061

PATIENT
  Age: 71 Year
  Sex: Female

DRUGS (1)
  1. XIAFLEX [Suspect]
     Indication: DUPUYTREN'S CONTRACTURE
     Dosage: 1 IN 1 D, INTRALESIONAL
     Route: 026
     Dates: start: 20110927, end: 20110927

REACTIONS (3)
  - LOSS OF CONSCIOUSNESS [None]
  - HAND FRACTURE [None]
  - FALL [None]
